FAERS Safety Report 18777304 (Version 1)
Quarter: 2021Q1

REPORT INFORMATION
  Report Type: Spontaneous
  Country: FR (occurrence: FR)
  Receive Date: 20210122
  Receipt Date: 20210122
  Transmission Date: 20210419
  Serious: Yes (Other)
  Sender: FDA-Public Use
  Company Number: FR-ALLERGAN-2103529US

PATIENT
  Sex: Male
  Weight: 62 kg

DRUGS (2)
  1. XYDALBA [Suspect]
     Active Substance: DALBAVANCIN HYDROCHLORIDE
     Indication: POSTOPERATIVE WOUND INFECTION
     Dosage: 1500 MG, SINGLE
     Route: 041
     Dates: start: 20210112, end: 20210112
  2. XYDALBA [Suspect]
     Active Substance: DALBAVANCIN HYDROCHLORIDE
     Dosage: 1500 MG, SINGLE
     Route: 041
     Dates: start: 20201215, end: 20201215

REACTIONS (3)
  - Pruritus [Recovered/Resolved]
  - Urticaria [Recovered/Resolved]
  - Folliculitis [Recovered/Resolved]

NARRATIVE: CASE EVENT DATE: 20210112
